FAERS Safety Report 9313032 (Version 2)
Quarter: 2013Q3

REPORT INFORMATION
  Report Type: Spontaneous
  Country: US (occurrence: US)
  Receive Date: 20130528
  Receipt Date: 20130828
  Transmission Date: 20140515
  Serious: No
  Sender: FDA-Public Use
  Company Number: US-ABBOTT-13P-163-1078932-00

PATIENT
  Age: 56 Year
  Sex: Male
  Weight: 95.34 kg

DRUGS (17)
  1. ANDROGEL [Suspect]
     Indication: BLOOD TESTOSTERONE DECREASED
     Dosage: 2 PUMPS
     Route: 061
     Dates: start: 201211
  2. TESTOSTERONE [Concomitant]
     Indication: BLOOD TESTOSTERONE DECREASED
     Route: 050
  3. SOMA [Concomitant]
     Indication: BACK PAIN
  4. HYDROCODONE [Concomitant]
     Indication: BACK PAIN
  5. VALIUM [Concomitant]
     Indication: INSOMNIA
  6. PROZAC [Concomitant]
     Indication: AFFECTIVE DISORDER
  7. ADDERALL [Concomitant]
     Indication: ATTENTION DEFICIT/HYPERACTIVITY DISORDER
  8. SIMVASTATIN [Concomitant]
     Indication: BLOOD CHOLESTEROL INCREASED
  9. IODORAL [Concomitant]
     Indication: SUPPLEMENTATION THERAPY
  10. VITAMIN C [Concomitant]
     Indication: SUPPLEMENTATION THERAPY
  11. VITAMIN D3 [Concomitant]
     Indication: SUPPLEMENTATION THERAPY
  12. CALCIUM [Concomitant]
     Indication: SUPPLEMENTATION THERAPY
  13. VITAMIN B 12 [Concomitant]
     Indication: SUPPLEMENTATION THERAPY
  14. OMEGA 3 FISH OIL [Concomitant]
     Indication: SUPPLEMENTATION THERAPY
  15. GARLIC [Concomitant]
     Indication: SUPPLEMENTATION THERAPY
  16. CHOLACOL [Concomitant]
     Indication: SUPPLEMENTATION THERAPY
  17. CELEBREX [Concomitant]
     Indication: BACK PAIN

REACTIONS (6)
  - Hypersomnia [Not Recovered/Not Resolved]
  - Fatigue [Not Recovered/Not Resolved]
  - Asthenia [Not Recovered/Not Resolved]
  - Erythema [Not Recovered/Not Resolved]
  - Weight increased [Not Recovered/Not Resolved]
  - Exposure to radiation [Not Recovered/Not Resolved]
